FAERS Safety Report 6400590-3 (Version None)
Quarter: 2009Q4

REPORT INFORMATION
  Report Type: 
  Country: None (occurrence: None)
  Receive Date: 20091014
  Receipt Date: 20091002
  Transmission Date: 20100525
  Serious: Yes (Hospitalization, Other)
  Sender: FDA-Public Use
  Company Number: PHHY2009PL39581

PATIENT
  Age: 17 Year
  Sex: Female

DRUGS (11)
  1. CYCLOSPORINE [Suspect]
     Indication: APLASTIC ANAEMIA
     Dosage: 5 MG/KG, 2 ORAL DOSES
     Route: 048
     Dates: start: 20060201
  2. CYCLOSPORINE [Suspect]
     Dosage: 5 MG/KG, 2 ORAL DOSES
     Route: 048
     Dates: start: 20061101
  3. THYMOGLOBULIN [Suspect]
     Indication: APLASTIC ANAEMIA
     Dosage: 3.75 MG/KG
     Route: 042
     Dates: start: 20060201
  4. THYMOGLOBULIN [Suspect]
     Indication: APLASTIC ANAEMIA
     Dosage: 15 MG/KG
     Dates: start: 20061101
  5. SOLU-MEDROL [Suspect]
     Dosage: 2 MG/KG, UNK
     Route: 042
     Dates: start: 20060201
  6. SOLU-MEDROL [Suspect]
     Dosage: 1 MG/KG, UNK
     Route: 042
  7. SOLU-MEDROL [Suspect]
     Dosage: 0.5 MG/KG, UNK
     Route: 042
  8. SOLU-MEDROL [Suspect]
     Dosage: UNK
     Dates: start: 20061101
  9. PREDNISOLONE [Concomitant]
     Indication: IMMUNOSUPPRESSION
     Dosage: UNK
  10. NEULASTA [Concomitant]
     Indication: GRANULOCYTOPENIA
     Dosage: UNK
     Dates: start: 20060201
  11. NEULASTA [Concomitant]
     Dosage: UNK
     Dates: start: 20061101

REACTIONS (10)
  - ACNE [None]
  - BENIGN TUMOUR EXCISION [None]
  - BREAST MASS [None]
  - CYSTOSARCOMA PHYLLODES [None]
  - DRUG INEFFECTIVE [None]
  - FIBROADENOMA OF BREAST [None]
  - GINGIVAL HYPERPLASIA [None]
  - HIRSUTISM [None]
  - MENORRHAGIA [None]
  - PYREXIA [None]
